FAERS Safety Report 19943267 (Version 1)
Quarter: 2021Q4

REPORT INFORMATION
  Report Type: Spontaneous
  Country: US (occurrence: US)
  Receive Date: 20211011
  Receipt Date: 20211011
  Transmission Date: 20220303
  Serious: No
  Sender: FDA-Public Use
  Company Number: US-INTRA-CELLULAR THERAPIES, INC.-2021ICT00316

PATIENT
  Age: 5 Decade
  Sex: Female

DRUGS (3)
  1. CAPLYTA [Suspect]
     Active Substance: LUMATEPERONE
     Indication: Schizophrenia
     Dosage: 42 MG, 1X/DAY AT NIGHT
     Route: 048
     Dates: start: 202106
  2. LITHIUM [Suspect]
     Active Substance: LITHIUM
     Dosage: UNK
  3. LAMICTAL [Suspect]
     Active Substance: LAMOTRIGINE

REACTIONS (1)
  - Vomiting [Not Recovered/Not Resolved]

NARRATIVE: CASE EVENT DATE: 20210601
